FAERS Safety Report 6527950-4 (Version None)
Quarter: 2010Q1

REPORT INFORMATION
  Report Type: 
  Country: None (occurrence: None)
  Receive Date: 20100105
  Receipt Date: 20100105
  Transmission Date: 20100710
  Serious: Yes (Hospitalization)
  Sender: FDA-Public Use
  Company Number: None

PATIENT
  Age: 34 Year
  Sex: Female
  Weight: 77.1115 kg

DRUGS (1)
  1. LAMICTAL [Suspect]
     Indication: BIPOLAR DISORDER
     Dosage: 3 TABLETS DAILY PO
     Route: 048
     Dates: start: 20091116, end: 20091219

REACTIONS (7)
  - CHOLECYSTITIS [None]
  - HEPATITIS ACUTE [None]
  - NAUSEA [None]
  - PYREXIA [None]
  - RASH [None]
  - TONGUE ULCERATION [None]
  - VOMITING [None]
